FAERS Safety Report 7023538-X (Version None)
Quarter: 2010Q3

REPORT INFORMATION
  Report Type: 
  Country: None (occurrence: None)
  Receive Date: 20100930
  Receipt Date: 20100930
  Transmission Date: 20110219
  Serious: Yes (Other)
  Sender: FDA-Public Use
  Company Number: None

PATIENT
  Age: 18 Year
  Sex: Male
  Weight: 83.8 kg

DRUGS (1)
  1. LAMICTAL [Suspect]
     Indication: BIPOLAR II DISORDER
     Dosage: 200 MG QD ORAL
     Route: 048
     Dates: start: 20100801, end: 20100901

REACTIONS (1)
  - ALOPECIA [None]
